FAERS Safety Report 5342643-7 (Version None)
Quarter: 2007Q2

REPORT INFORMATION
  Report Type: 
  Country: None (occurrence: None)
  Receive Date: 20070601
  Receipt Date: 20070525
  Transmission Date: 20071010
  Serious: Yes (Hospitalization, Other)
  Sender: FDA-Public Use
  Company Number: US-BOEHRINGER INGELHEIM PHARMACEUTICALS, INC.-2007-BP-06402BP

PATIENT
  Age: 78 Year
  Sex: Male

DRUGS (5)
  1. MOBIC [Suspect]
     Indication: OSTEOARTHRITIS
     Route: 048
     Dates: start: 20070331
  2. UNSPECIFIED NON-BI STUDY DRUG [Suspect]
     Indication: OSTEOARTHRITIS
     Dates: start: 20070320
  3. PRINIVIL [Concomitant]
     Indication: HYPERTENSION
  4. MOTRIN [Concomitant]
  5. MULTI-VITAMIN [Concomitant]

REACTIONS (8)
  - BALANCE DISORDER [None]
  - CELLULITIS STAPHYLOCOCCAL [None]
  - CONFUSIONAL STATE [None]
  - DISORIENTATION [None]
  - FALL [None]
  - HEAD INJURY [None]
  - SKIN LACERATION [None]
  - STAPHYLOCOCCAL SEPSIS [None]
